FAERS Safety Report 5529785-8 (Version None)
Quarter: 2007Q4

REPORT INFORMATION
  Report Type: 
  Country: None (occurrence: None)
  Receive Date: 20071129
  Receipt Date: 20070124
  Transmission Date: 20080405
  Serious: No
  Sender: FDA-Public Use
  Company Number: US-ABBOTT-07P-163-0358510-00

PATIENT
  Sex: Female
  Weight: 90.8 kg

DRUGS (3)
  1. MERIDIA [Suspect]
     Indication: WEIGHT CONTROL
     Route: 048
     Dates: start: 20060601, end: 20061101
  2. MERIDIA [Suspect]
     Route: 048
     Dates: start: 20061101, end: 20061101
  3. ALPRAZOLAM [Concomitant]
     Indication: PANIC ATTACK
     Route: 048
     Dates: start: 20050101

REACTIONS (3)
  - CARDIAC FLUTTER [None]
  - DRUG INEFFECTIVE [None]
  - HEADACHE [None]
